FAERS Safety Report 7208499-2 (Version None)
Quarter: 2010Q4

REPORT INFORMATION
  Report Type: 
  Country: None (occurrence: None)
  Receive Date: 20101222
  Receipt Date: 20101208
  Transmission Date: 20110411
  Serious: No
  Sender: FDA-Public Use
  Company Number: 2010-01039

PATIENT
  Age: 49 Year
  Sex: Female
  Weight: 81.6475 kg

DRUGS (3)
  1. ZICAM COLD REMEDY PLUS ORAL MIST [Suspect]
     Dosage: TID X 1 DAY
     Dates: start: 20101208, end: 20101208
  2. ALLEGRA [Concomitant]
  3. MULTIVITAMIN (GENERIC HOSPITAL BRAND) [Concomitant]

REACTIONS (1)
  - AGEUSIA [None]
